FAERS Safety Report 6761241-1 (Version None)
Quarter: 2010Q2

REPORT INFORMATION
  Report Type: 
  Country: None (occurrence: None)
  Receive Date: 20100608
  Receipt Date: 20100527
  Transmission Date: 20101027
  Serious: Yes (Other)
  Sender: FDA-Public Use
  Company Number: PHHY2010US34960

PATIENT
  Sex: Female

DRUGS (3)
  1. DIOVAN [Suspect]
     Indication: HYPERTENSION
     Dosage: UNK
  2. ANTARA (MICRONIZED) [Suspect]
     Dosage: UNK
  3. IMODIUM [Suspect]

REACTIONS (4)
  - BLOOD GLUCOSE INCREASED [None]
  - CROHN'S DISEASE [None]
  - INTESTINAL RESECTION [None]
  - NASOPHARYNGITIS [None]
